FAERS Safety Report 11223704 (Version 1)
Quarter: 2015Q2

REPORT INFORMATION
  Report Type: Spontaneous
  Country: US (occurrence: US)
  Receive Date: 20150629
  Receipt Date: 20150629
  Transmission Date: 20150821
  Serious: No
  Sender: FDA-Public Use
  Company Number: US-TEVA-538485USA

PATIENT
  Age: 74 Year
  Sex: Female

DRUGS (1)
  1. LETROZOLE. [Suspect]
     Active Substance: LETROZOLE
     Indication: BREAST CANCER STAGE II
     Dosage: 2.5 MILLIGRAM DAILY;
     Route: 065

REACTIONS (1)
  - Recall phenomenon [Recovered/Resolved with Sequelae]
